FAERS Safety Report 22320046 (Version 1)
Quarter: 2023Q2

REPORT INFORMATION
  Report Type: Spontaneous
  Country: DE (occurrence: DE)
  Receive Date: 20230515
  Receipt Date: 20230515
  Transmission Date: 20230721
  Serious: Yes (Other)
  Sender: FDA-Public Use
  Company Number: DE-VIIV HEALTHCARE ULC-DE2023EME061778

PATIENT
  Age: 61 Year
  Sex: Male

DRUGS (4)
  1. ABACAVIR [Suspect]
     Active Substance: ABACAVIR
     Indication: HIV infection CDC category B
     Dosage: UNK
     Route: 065
     Dates: start: 20000601, end: 20010115
  2. NEVIRAPINE [Suspect]
     Active Substance: NEVIRAPINE
     Indication: HIV infection CDC category B
     Dosage: UNK
     Route: 065
     Dates: start: 20001115, end: 20010115
  3. EFAVIRENZ [Suspect]
     Active Substance: EFAVIRENZ
     Indication: HIV infection CDC category B
     Dosage: UNK
     Route: 065
     Dates: start: 20000601, end: 20001115
  4. DIDANOSINE [Suspect]
     Active Substance: DIDANOSINE
     Indication: HIV infection CDC category B
     Dosage: UNK
     Route: 065
     Dates: start: 20000601, end: 20010115

REACTIONS (3)
  - Major depression [Unknown]
  - Viral mutation identified [Unknown]
  - Nervous system disorder [Unknown]
